FAERS Safety Report 18124818 (Version 1)
Quarter: 2020Q3

REPORT INFORMATION
  Report Type: Spontaneous
  Country: US (occurrence: US)
  Receive Date: 20200807
  Receipt Date: 20200807
  Transmission Date: 20201103
  Serious: No
  Sender: FDA-Public Use
  Company Number: US-PFIZER INC-2019408422

PATIENT
  Age: 45 Year

DRUGS (1)
  1. PREMARIN [Suspect]
     Active Substance: ESTROGENS, CONJUGATED
     Dosage: 1 G (INSERT 1 GRAM 3 TIMES A WEEK INTO THE VAGINAL/ CERVIX AREA)
     Route: 067

REACTIONS (2)
  - Off label use [Unknown]
  - Hot flush [Unknown]
